FAERS Safety Report 23121623 (Version 5)
Quarter: 2024Q2

REPORT INFORMATION
  Report Type: Other
  Country: PL (occurrence: PL)
  Receive Date: 20231029
  Receipt Date: 20240411
  Transmission Date: 20240716
  Serious: Yes (Hospitalization, Other)
  Sender: FDA-Public Use
  Company Number: None

PATIENT
  Age: 26 Year
  Sex: Female

DRUGS (52)
  1. PREDNISOLONE [Suspect]
     Active Substance: PREDNISOLONE
     Indication: Analgesic therapy
     Dosage: 10 MILLIGRAM, TABLET
     Route: 048
  2. PREDNISOLONE [Suspect]
     Active Substance: PREDNISOLONE
     Indication: Neuralgia
     Dosage: UNK (TABLET)
     Route: 065
  3. PREDNISOLONE [Suspect]
     Active Substance: PREDNISOLONE
     Dosage: 10 MILLIGRAM, TABLET
     Route: 048
  4. GABAPENTIN [Suspect]
     Active Substance: GABAPENTIN
     Indication: Polyneuropathy
     Dosage: 1800 MILLIGRAM, QD, 600 UNK
     Route: 065
  5. GABAPENTIN [Suspect]
     Active Substance: GABAPENTIN
     Indication: Neuralgia
     Dosage: 400 MILLIGRAM
     Route: 065
  6. GABAPENTIN [Suspect]
     Active Substance: GABAPENTIN
     Dosage: 400 MILLIGRAM, QD
     Route: 065
  7. GABAPENTIN [Suspect]
     Active Substance: GABAPENTIN
     Dosage: 1200 MILLIGRAM, QD, 400 MG, TID
     Route: 065
  8. GABAPENTIN [Suspect]
     Active Substance: GABAPENTIN
     Dosage: 600 MILLIGRAM, QD (600 MG, DAILY)
     Route: 065
  9. LEVETIRACETAM [Suspect]
     Active Substance: LEVETIRACETAM
     Indication: Polyneuropathy
     Dosage: 2000 MILLIGRAM, QD
     Route: 065
  10. LEVETIRACETAM [Suspect]
     Active Substance: LEVETIRACETAM
     Indication: Myoclonus
     Dosage: 1600 MILLIGRAM, QD, 800 MILLIGRAM, BID
     Route: 065
  11. LEVETIRACETAM [Suspect]
     Active Substance: LEVETIRACETAM
     Indication: Nervous system disorder
     Dosage: 1600 MILLIGRAM, QD, 800 MILLIGRAM, BID
     Route: 065
  12. LEVETIRACETAM [Suspect]
     Active Substance: LEVETIRACETAM
     Dosage: 2000 MILLIGRAM, QD, (2 X 1000 MG)
     Route: 065
  13. LEVETIRACETAM [Suspect]
     Active Substance: LEVETIRACETAM
     Dosage: 2000 MILLIGRAM,UNK
     Route: 065
  14. MORPHINE SULFATE [Suspect]
     Active Substance: MORPHINE SULFATE
     Indication: Pain
     Dosage: 60 MILLIGRAM, QD, 30 MILLIGRAM, BID
     Route: 065
  15. IBUPROFEN [Suspect]
     Active Substance: IBUPROFEN
     Indication: Analgesic therapy
     Dosage: 400 MILLIGRAM, BID
     Route: 065
  16. IBUPROFEN [Suspect]
     Active Substance: IBUPROFEN
     Indication: Pain
     Dosage: 800 MILLIGRAM, QD (2 X 400 MG)
     Route: 065
  17. IBUPROFEN [Suspect]
     Active Substance: IBUPROFEN
     Indication: Neuralgia
     Dosage: 800 MILLIGRAM, QD (2 X 400 MG)
     Route: 065
  18. FENTANYL [Suspect]
     Active Substance: FENTANYL\FENTANYL CITRATE
     Indication: Neuralgia
     Dosage: 150 MILLIGRAM, Q72H
     Route: 062
  19. FENTANYL [Suspect]
     Active Substance: FENTANYL\FENTANYL CITRATE
     Indication: Analgesic therapy
     Dosage: 150 MICROGRAM, EVERY HOUR (150 ?G/H EVERY 3 DAYS)
     Route: 062
  20. FENTANYL [Suspect]
     Active Substance: FENTANYL\FENTANYL CITRATE
     Indication: Neuralgia
     Dosage: 300 MICROGRAM, EVERY HOUR (300 MICROGRAM, Q1HR)
     Route: 062
  21. FENTANYL [Suspect]
     Active Substance: FENTANYL\FENTANYL CITRATE
     Dosage: 1 DOSAGE FORM, TID (150 ?G/H IN EVERY 3 DAYS PERCUTANEOUSLY)
     Route: 062
  22. PREDNISONE [Suspect]
     Active Substance: PREDNISONE
     Indication: Neuralgia
     Dosage: 10 MILLIGRAM
     Route: 048
  23. PREDNISONE [Suspect]
     Active Substance: PREDNISONE
     Dosage: 10 MILLIGRAM
     Route: 048
  24. PIRACETAM [Suspect]
     Active Substance: PIRACETAM
     Indication: Polyneuropathy
     Dosage: 4800 MILLIGRAM, QD (2 X 2400 MG)
     Route: 065
  25. PIRACETAM [Suspect]
     Active Substance: PIRACETAM
     Indication: Nervous system disorder
     Dosage: 4800 MILLIGRAM, QD
     Route: 065
  26. CLONAZEPAM [Suspect]
     Active Substance: CLONAZEPAM
     Indication: Polyneuropathy
     Dosage: 1 MILLIGRAM, QD
     Route: 065
  27. PAROXETINE [Suspect]
     Active Substance: PAROXETINE
     Indication: Polyneuropathy
     Dosage: 80 MILLIGRAM, UNK
     Route: 065
  28. PAROXETINE [Suspect]
     Active Substance: PAROXETINE
     Indication: Nervous system disorder
     Dosage: 40 MILLIGRAM, QD, 1 X 40 MG IN THE MORNING
     Route: 065
  29. PAROXETINE [Suspect]
     Active Substance: PAROXETINE
     Indication: Nervous system disorder
  30. FENTANYL [Suspect]
     Active Substance: FENTANYL\FENTANYL CITRATE
     Indication: Pain
     Dosage: 300 MICROGRAM, EVERY HOUR (TRANSMUCOSAL FENTANYL 300 ?G EVERY 1 H INTRANASALLY TRANSMUCOSALLY)
     Route: 045
  31. FENTANYL [Suspect]
     Active Substance: FENTANYL\FENTANYL CITRATE
     Indication: Neuralgia
     Dosage: 300 MICROGRAM, EVERY HOUR (300 MICROGRAM, Q1HR)
     Route: 045
  32. FENTANYL [Suspect]
     Active Substance: FENTANYL\FENTANYL CITRATE
     Indication: Analgesic therapy
     Dosage: 150 MICROGRAM, Q72H
     Route: 045
  33. FENTANYL [Suspect]
     Active Substance: FENTANYL\FENTANYL CITRATE
     Indication: Neuralgia
     Dosage: 150 MICROGRAM, EVERY HOUR (150 UG, Q1H (EVERY 3 DAYS))
     Route: 045
  34. VALPROIC ACID [Suspect]
     Active Substance: VALPROIC ACID
     Indication: Neuralgia
     Dosage: 600 MILLIGRAM, QD, (2 X 300 MG)
     Route: 065
  35. VALPROIC ACID [Suspect]
     Active Substance: VALPROIC ACID
     Indication: Nervous system disorder
     Dosage: 300 MILLIGRAM, EVERY 12 HRS (300 MG, BID)
     Route: 065
  36. VALPROATE [Suspect]
     Active Substance: VALPROIC ACID
     Indication: Neuralgia
     Dosage: 600 MILLIGRAM, QD (2 X 300 MG)
     Route: 065
  37. PAROXETINE [Concomitant]
     Active Substance: PAROXETINE
     Indication: Nervous system disorder
     Dosage: 40 MILLIGRAM, QD (IN THE MORNING)
     Route: 065
  38. PIRACETAM [Concomitant]
     Active Substance: PIRACETAM
     Indication: Nervous system disorder
     Dosage: 2400 MILLIGRAM, EVERY 12 HRS (2400 MG, BID)
     Route: 065
  39. CLONAZEPAM [Concomitant]
     Active Substance: CLONAZEPAM
     Indication: Myoclonus
     Dosage: 1 MILLIGRAM, QD, (2 X 0.5 MG)
     Route: 065
  40. CLONAZEPAM [Concomitant]
     Active Substance: CLONAZEPAM
     Indication: Nervous system disorder
  41. DULOXETINE [Concomitant]
     Active Substance: DULOXETINE
     Indication: Pain
     Dosage: UNK
     Route: 065
  42. VALPROIC ACID [Concomitant]
     Active Substance: VALPROIC ACID
     Indication: Product used for unknown indication
     Dosage: 600 MILLIGRAM, QD, 300 MILLIGRAM, BID
     Route: 065
  43. AMITRIPTYLINE [Concomitant]
     Active Substance: AMITRIPTYLINE
     Indication: Pain
     Dosage: 50 MILLIGRAM, QD (50 MG, DAILY)
     Route: 065
  44. GABAPENTIN [Concomitant]
     Active Substance: GABAPENTIN
     Indication: Neuralgia
     Dosage: 1200 MILLIGRAM, QD (3 X 400 MG)
     Route: 065
  45. GABAPENTIN [Concomitant]
     Active Substance: GABAPENTIN
     Indication: Nervous system disorder
     Dosage: 600 MILLIGRAM, EVERY 8 HRS (600 MG, TID)
     Route: 065
  46. GABAPENTIN [Concomitant]
     Active Substance: GABAPENTIN
     Dosage: 600 MILLIGRAM, QD, (600 MG, QD)
     Route: 065
  47. GABAPENTIN [Concomitant]
     Active Substance: GABAPENTIN
     Dosage: 400 MILLIGRAM, EVERY 8 HRS (600 MG, TID)
     Route: 065
  48. IBUPROFEN [Concomitant]
     Active Substance: IBUPROFEN
     Indication: Analgesic therapy
     Dosage: 800 MILLIGRAM, QD, 400 MILLIGRAM, BID
     Route: 065
  49. PREDNISONE [Concomitant]
     Active Substance: PREDNISONE
     Indication: Analgesic therapy
     Dosage: 10 MILLIGRAM
     Route: 065
  50. LEVETIRACETAM [Concomitant]
     Active Substance: LEVETIRACETAM
     Indication: Nervous system disorder
     Dosage: 800 MILLIGRAM, EVERY 12 HRS (800 MG, BID)
     Route: 065
  51. LEVETIRACETAM [Concomitant]
     Active Substance: LEVETIRACETAM
     Indication: Myoclonus
     Dosage: 1000 MILLIGRAM, EVERY 12 HRS (1000 MG, BID)
     Route: 065
  52. MORPHINE [Concomitant]
     Active Substance: MORPHINE
     Indication: Neuralgia
     Dosage: 60 MILLIGRAM, QD (2 X 30 MG)
     Route: 065

REACTIONS (24)
  - Disorganised speech [Recovered/Resolved]
  - Mitochondrial encephalomyopathy [Recovered/Resolved]
  - Mitochondrial toxicity [Recovered/Resolved]
  - Disorientation [Recovered/Resolved]
  - Pain in extremity [Recovered/Resolved]
  - Pain [Recovered/Resolved]
  - Pain [Recovered/Resolved]
  - Speech disorder [Recovered/Resolved]
  - Myoclonus [Recovered/Resolved]
  - Restlessness [Recovered/Resolved]
  - Neuralgia [Recovered/Resolved]
  - Hypoaesthesia [Recovered/Resolved]
  - Abdominal pain [Recovered/Resolved]
  - Somnolence [Recovered/Resolved]
  - Somnolence [Recovered/Resolved]
  - Condition aggravated [Recovered/Resolved]
  - Drug ineffective [Unknown]
  - Drug abuse [Recovered/Resolved]
  - Drug dependence [Recovered/Resolved]
  - Overdose [Unknown]
  - Product selection error [Recovered/Resolved]
  - Wrong product administered [Unknown]
  - Medication error [Unknown]
  - Off label use [Unknown]

NARRATIVE: CASE EVENT DATE: 20220515
